FAERS Safety Report 5033873-2 (Version None)
Quarter: 2006Q2

REPORT INFORMATION
  Report Type: 
  Country: None (occurrence: None)
  Receive Date: 20060623
  Receipt Date: 20060621
  Transmission Date: 20061013
  Serious: Yes (Hospitalization, Other)
  Sender: FDA-Public Use
  Company Number: US-JNJFOC-20060604807

PATIENT
  Age: 78 Year
  Sex: Male

DRUGS (7)
  1. LEVOFLOXACIN [Suspect]
     Indication: URINARY TRACT INFECTION
     Route: 048
  2. GLYBURIDE [Interacting]
     Indication: BLOOD GLUCOSE INCREASED
  3. NITROFURANTOIN [Concomitant]
     Indication: URINARY TRACT INFECTION
     Route: 048
  4. PREDNISONE [Concomitant]
  5. VITAMIN [Concomitant]
  6. TERAZOSIN HCL [Concomitant]
  7. MESALAMINE [Concomitant]

REACTIONS (3)
  - ANOXIC ENCEPHALOPATHY [None]
  - DRUG INTERACTION [None]
  - HYPOGLYCAEMIA [None]
